FAERS Safety Report 24268649 (Version 1)
Quarter: 2024Q3

REPORT INFORMATION
  Report Type: Spontaneous
  Country: US (occurrence: None)
  Receive Date: 20240829
  Receipt Date: 20240829
  Transmission Date: 20241017
  Serious: Yes (Disabling)
  Sender: Public
  Company Number: None

PATIENT
  Age: 64 Year
  Sex: Female
  Weight: 68.4 kg

DRUGS (6)
  1. GADOLINIUM [Suspect]
     Active Substance: GADOLINIUM
     Indication: Magnetic resonance imaging
     Dates: start: 20191201, end: 20240618
  2. ARMOUR THYROID [Concomitant]
     Active Substance: THYROID, PORCINE
  3. BREO ELLIPTA [Concomitant]
     Active Substance: FLUTICASONE FUROATE\VILANTEROL TRIFENATATE
  4. TAMOXIFEN [Concomitant]
     Active Substance: TAMOXIFEN
  5. MyCommunity mushroom supplement [Concomitant]
  6. ASTAXANTHIN [Concomitant]
     Active Substance: ASTAXANTHIN

REACTIONS (11)
  - Tinnitus [None]
  - Paraesthesia [None]
  - Hypoaesthesia [None]
  - Sensory disturbance [None]
  - Muscle twitching [None]
  - Brain fog [None]
  - Speech disorder [None]
  - Anger [None]
  - Renal impairment [None]
  - Metal poisoning [None]
  - Screaming [None]

NARRATIVE: CASE EVENT DATE: 20240618
